FAERS Safety Report 13990647 (Version 3)
Quarter: 2020Q1

REPORT INFORMATION
  Report Type: Spontaneous
  Country: US (occurrence: US)
  Receive Date: 20170920
  Receipt Date: 20200204
  Transmission Date: 20200409
  Serious: No
  Sender: FDA-Public Use
  Company Number: US-PFIZER INC-2017402943

PATIENT
  Age: 93 Year
  Sex: Female
  Weight: 64 kg

DRUGS (1)
  1. IBRANCE [Suspect]
     Active Substance: PALBOCICLIB
     Indication: BREAST CANCER FEMALE
     Dosage: 125 MG, CYCLIC (ONCE A DAY, DAY 1-21)
     Route: 048
     Dates: start: 201707

REACTIONS (5)
  - Alopecia [Unknown]
  - Decreased appetite [Recovering/Resolving]
  - Anaemia [Recovering/Resolving]
  - Dyspnoea [Unknown]
  - Insomnia [Unknown]

NARRATIVE: CASE EVENT DATE: 201708
